FAERS Safety Report 19030294 (Version 1)
Quarter: 2021Q1

REPORT INFORMATION
  Report Type: Other
  Country: IN (occurrence: IN)
  Receive Date: 20210319
  Receipt Date: 20210319
  Transmission Date: 20210420
  Serious: Yes (Other)
  Sender: FDA-Public Use
  Company Number: IN-LAURUS-001054

PATIENT
  Weight: 73 kg

DRUGS (1)
  1. HYDROXYCHLOROQUINE [Suspect]
     Active Substance: HYDROXYCHLOROQUINE
     Indication: RHEUMATOID ARTHRITIS
     Dosage: MEAN DAILY DOSE 4.8 MG/KG RBW AND  8.21 MG/KG IBW/DAY, CUMMULATIVE DOSE: 1449.6 (GRAMS)

REACTIONS (2)
  - Toxicity to various agents [Unknown]
  - Retinopathy [Unknown]
